FAERS Safety Report 25721955 (Version 1)
Quarter: 2025Q3

REPORT INFORMATION
  Report Type: Spontaneous
  Country: GB (occurrence: GB)
  Receive Date: 20250825
  Receipt Date: 20250825
  Transmission Date: 20251020
  Serious: Yes (Life-Threatening, Other)
  Sender: BAYER HEALTHCARE PHARMACEUTICALS INC.
  Company Number: None

PATIENT
  Age: 82 Year
  Sex: Male
  Weight: 67 kg

DRUGS (1)
  1. CIPROFLOXACIN [Suspect]
     Active Substance: CIPROFLOXACIN
     Indication: Prostatitis
     Dosage: 500 MG, BID
     Route: 048
     Dates: start: 20250819, end: 20250820

REACTIONS (2)
  - Psychiatric symptom [Recovering/Resolving]
  - Suicidal ideation [None]

NARRATIVE: CASE EVENT DATE: 20250801
